FAERS Safety Report 18121693 (Version 1)
Quarter: 2020Q3

REPORT INFORMATION
  Report Type: Report from Study
  Country: CA (occurrence: CA)
  Receive Date: 20200806
  Receipt Date: 20200806
  Transmission Date: 20201103
  Serious: Yes (Hospitalization)
  Sender: FDA-Public Use
  Company Number: CA-SEATTLE GENETICS-2020SGN03440

PATIENT
  Age: 64 Year
  Sex: Male
  Weight: 107.5 kg

DRUGS (5)
  1. DOXORUBICIN [Suspect]
     Active Substance: DOXORUBICIN
     Indication: PERIPHERAL T-CELL LYMPHOMA UNSPECIFIED
     Dosage: 50 MG/M2, Q3WEEKS
     Route: 042
     Dates: start: 20200609, end: 20200630
  2. CYCLOPHOSPHAMIDE. [Suspect]
     Active Substance: CYCLOPHOSPHAMIDE
     Indication: PERIPHERAL T-CELL LYMPHOMA UNSPECIFIED
     Dosage: 750 MG/M2, Q3WEEKS
     Route: 042
     Dates: start: 20200609, end: 20200630
  3. BRENTUXIMAB VEDOTIN [Suspect]
     Active Substance: BRENTUXIMAB VEDOTIN
     Indication: PERIPHERAL T-CELL LYMPHOMA UNSPECIFIED
     Dosage: 1.8 MG/KG, Q3WEEKS
     Route: 042
     Dates: start: 20200609, end: 20200630
  4. ETOPOSIDE. [Suspect]
     Active Substance: ETOPOSIDE
     Indication: PERIPHERAL T-CELL LYMPHOMA UNSPECIFIED
     Dosage: 100 MG/M2, Q3WEEKS
     Route: 042
     Dates: start: 20200609, end: 20200703
  5. PREDNISONE. [Suspect]
     Active Substance: PREDNISONE
     Indication: PERIPHERAL T-CELL LYMPHOMA UNSPECIFIED
     Dosage: 100 MG, QCYCLE
     Route: 048
     Dates: start: 20200609, end: 20200703

REACTIONS (2)
  - Clostridium bacteraemia [Recovered/Resolved]
  - Clostridium difficile infection [Recovered/Resolved]

NARRATIVE: CASE EVENT DATE: 20200710
